FAERS Safety Report 8789313 (Version 1)
Quarter: 2012Q4

REPORT INFORMATION
  Report Type: Spontaneous
  Country: None (occurrence: None)
  Receive Date: 20120905
  Receipt Date: 20120905
  Transmission Date: 20130627
  Serious: Yes (Life-Threatening)
  Sender: FDA-Public Use
  Company Number: AUR-APL-2012-03615

PATIENT
  Age: 51 Year
  Sex: Male
  Weight: 110 kg

DRUGS (2)
  1. RAMIPRIL [Suspect]
     Indication: DRUG USE FOR UNKNOWN INDICATION
  2. ATENOLOL (ATENOLOL) [Concomitant]

REACTIONS (6)
  - Obstructive airways disorder [None]
  - Swelling face [None]
  - Accident [None]
  - Hypertension [None]
  - Ear disorder [None]
  - Arthropathy [None]
